FAERS Safety Report 5310244-2 (Version None)
Quarter: 2007Q2

REPORT INFORMATION
  Report Type: 
  Country: None (occurrence: None)
  Receive Date: 20070427
  Receipt Date: 20070426
  Transmission Date: 20071010
  Serious: Yes (Disabling)
  Sender: FDA-Public Use
  Company Number: CN-BRISTOL-MYERS SQUIBB COMPANY-13741335

PATIENT
  Age: 32 Year
  Sex: Male

DRUGS (2)
  1. BARACLUDE [Suspect]
     Indication: HEPATITIS B VIRUS
     Route: 048
     Dates: start: 20070322, end: 20070404
  2. ESSENTIALE FORTE [Concomitant]

REACTIONS (1)
  - DEAFNESS UNILATERAL [None]
